FAERS Safety Report 14895968 (Version 2)
Quarter: 2018Q2

REPORT INFORMATION
  Report Type: Spontaneous
  Country: US (occurrence: US)
  Receive Date: 20180515
  Receipt Date: 20180525
  Transmission Date: 20180711
  Serious: Yes (Hospitalization, Other)
  Sender: FDA-Public Use
  Company Number: US-AUROBINDO-AUR-APL-2018-025462

PATIENT

DRUGS (5)
  1. METHYLPREDNISOLONE. [Suspect]
     Active Substance: METHYLPREDNISOLONE
     Indication: AORTITIS
  2. PREDNISONE. [Suspect]
     Active Substance: PREDNISONE
     Indication: MYELODYSPLASTIC SYNDROME
     Dosage: 80 MILLIGRAM, ONCE A DAY
     Route: 065
  3. METHYLPREDNISOLONE. [Suspect]
     Active Substance: METHYLPREDNISOLONE
     Indication: MYELODYSPLASTIC SYNDROME
     Dosage: 0.8 MILLIGRAM/KILOGRAM
     Route: 042
  4. DECITABINE. [Suspect]
     Active Substance: DECITABINE
     Indication: MYELODYSPLASTIC SYNDROME
     Dosage: UNK
     Route: 065
  5. PREDNISONE. [Suspect]
     Active Substance: PREDNISONE
     Indication: AORTITIS

REACTIONS (7)
  - Back pain [Unknown]
  - Fatigue [Unknown]
  - Chest discomfort [Unknown]
  - Febrile neutropenia [Unknown]
  - Thrombocytopenia [Unknown]
  - Refractory cytopenia with unilineage dysplasia [Unknown]
  - Hyperglycaemia [Unknown]
